FAERS Safety Report 5444021-9 (Version None)
Quarter: 2007Q3

REPORT INFORMATION
  Report Type: 
  Country: None (occurrence: None)
  Receive Date: 20070831
  Receipt Date: 20070820
  Transmission Date: 20080115
  Serious: Yes (Death)
  Sender: FDA-Public Use
  Company Number: 2007US001986

PATIENT
  Sex: Female

DRUGS (1)
  1. VAPRISOL [Suspect]
     Indication: HYPONATRAEMIA
     Dosage: IV DRIP
     Route: 041
     Dates: start: 20070101

REACTIONS (1)
  - BLOOD SODIUM DECREASED [None]
